FAERS Safety Report 5081520-6 (Version None)
Quarter: 2006Q3

REPORT INFORMATION
  Report Type: 
  Country: None (occurrence: None)
  Receive Date: 20060815
  Receipt Date: 20060815
  Transmission Date: 20061208
  Serious: Yes (Other)
  Sender: FDA-Public Use
  Company Number: None

PATIENT
  Age: 36 Year
  Sex: Female
  Weight: 70 kg

DRUGS (2)
  1. UNIPHYL [Suspect]
     Indication: ASTHMA
     Dates: start: 20051215, end: 20051217
  2. PROCATEROL HCL [Suspect]
     Dates: start: 20051217, end: 20051217

REACTIONS (8)
  - ADVERSE DRUG REACTION [None]
  - ASTHENIA [None]
  - CHEST PAIN [None]
  - DYSSTASIA [None]
  - LOSS OF CONSCIOUSNESS [None]
  - MALAISE [None]
  - MUSCULOSKELETAL DISORDER [None]
  - TREMOR [None]
